FAERS Safety Report 8820900 (Version 4)
Quarter: 2013Q1

REPORT INFORMATION
  Report Type: Spontaneous
  Country: JP (occurrence: JP)
  Receive Date: 20121002
  Receipt Date: 20130214
  Transmission Date: 20140127
  Serious: Yes (Hospitalization)
  Sender: FDA-Public Use
  Company Number: JP-JNJFOC-20120911691

PATIENT
  Age: 39 Year
  Sex: Male

DRUGS (3)
  1. RISPERDAL [Suspect]
     Indication: DELUSION
     Route: 048
     Dates: start: 20111130, end: 20111206
  2. RISPERDAL [Suspect]
     Indication: HALLUCINATION
     Route: 048
     Dates: start: 20111130, end: 20111206
  3. RISPERDAL [Suspect]
     Indication: ACUTE PSYCHOSIS
     Route: 048
     Dates: start: 20111130, end: 20111206

REACTIONS (1)
  - Hepatic function abnormal [Recovering/Resolving]
